FAERS Safety Report 8294209-7 (Version None)
Quarter: 2012Q2

REPORT INFORMATION
  Report Type: 
  Country: None (occurrence: None)
  Receive Date: 20120418
  Receipt Date: 20120410
  Transmission Date: 20120825
  Serious: Yes (Life-Threatening, Hospitalization, Other)
  Sender: FDA-Public Use
  Company Number: DK-JNJFOC-20110600734

PATIENT
  Sex: Female
  Weight: 99 kg

DRUGS (12)
  1. METHOTREXATE [Concomitant]
     Route: 065
     Dates: start: 20071022, end: 20080108
  2. METHOTREXATE [Concomitant]
     Route: 065
     Dates: start: 20070312, end: 20070430
  3. REMICADE [Suspect]
     Indication: RHEUMATOID ARTHRITIS
     Route: 042
     Dates: start: 20110321
  4. SULFASALAZINE [Concomitant]
     Indication: RHEUMATOID ARTHRITIS
     Route: 065
     Dates: start: 20080108, end: 20100412
  5. SULFASALAZINE [Concomitant]
     Route: 065
     Dates: start: 20100614, end: 20110320
  6. REMICADE [Suspect]
     Route: 042
     Dates: start: 20110405
  7. METHOTREXATE [Concomitant]
     Route: 065
     Dates: start: 20060919, end: 20070101
  8. METHOTREXATE [Concomitant]
     Route: 065
     Dates: start: 20110321, end: 20110505
  9. SULFASALAZINE [Concomitant]
     Route: 065
     Dates: start: 20110506, end: 20110506
  10. LEFLUNOMIDE [Concomitant]
     Indication: RHEUMATOID ARTHRITIS
     Route: 065
     Dates: start: 20100413, end: 20100613
  11. REMICADE [Suspect]
     Dosage: AT WEEK 0, 2, 6 AND 8
     Route: 042
     Dates: start: 20110506
  12. PREDNISOLONE [Concomitant]
     Indication: RHEUMATOID ARTHRITIS
     Route: 065
     Dates: start: 20100701, end: 20110506

REACTIONS (8)
  - SHOCK [None]
  - HYPERSENSITIVITY [None]
  - ARTHRALGIA [None]
  - PYREXIA [None]
  - BRONCHOSPASM [None]
  - WHEEZING [None]
  - PALPITATIONS [None]
  - MYALGIA [None]
